FAERS Safety Report 5798064-6 (Version None)
Quarter: 2008Q3

REPORT INFORMATION
  Report Type: 
  Country: None (occurrence: None)
  Receive Date: 20080702
  Receipt Date: 20070810
  Transmission Date: 20090109
  Serious: No
  Sender: FDA-Public Use
  Company Number: US-ASTRAZENECA-2007UW15920

PATIENT
  Age: 77 Year
  Sex: Male
  Weight: 81.6 kg

DRUGS (9)
  1. ZOLADEX [Suspect]
     Indication: PROSTATE CANCER
     Route: 058
     Dates: start: 20050101, end: 20070301
  2. PRINIVIL [Concomitant]
  3. ATENOLOL [Concomitant]
     Route: 048
  4. HYDROCHLOROTHIAZIDE [Concomitant]
  5. VITAMIN B-12 [Concomitant]
  6. OMACOR [Concomitant]
  7. FOSAMAX [Concomitant]
  8. CALCIUM CITRATE [Concomitant]
  9. LIPITOR [Concomitant]

REACTIONS (2)
  - FATIGUE [None]
  - HYPOTHYROIDISM [None]
